FAERS Safety Report 21959426 (Version 2)
Quarter: 2023Q2

REPORT INFORMATION
  Report Type: Spontaneous
  Country: US (occurrence: US)
  Receive Date: 20230206
  Receipt Date: 20230410
  Transmission Date: 20230721
  Serious: Yes (Hospitalization, Other)
  Sender: FDA-Public Use
  Company Number: US-BRISTOL-MYERS SQUIBB COMPANY-2023-015513

PATIENT
  Age: 77 Year
  Sex: Male

DRUGS (1)
  1. REVLIMID [Suspect]
     Active Substance: LENALIDOMIDE
     Indication: Plasma cell myeloma
     Dosage: FREQUENCY: 14/OTHER
     Route: 048

REACTIONS (5)
  - Pain [Unknown]
  - Back pain [Unknown]
  - Dysarthria [Unknown]
  - Neuropathy peripheral [Unknown]
  - Brain fog [Unknown]

NARRATIVE: CASE EVENT DATE: 20230130
